FAERS Safety Report 25178546 (Version 1)
Quarter: 2025Q2

REPORT INFORMATION
  Report Type: Spontaneous
  Country: US (occurrence: None)
  Receive Date: 20250409
  Receipt Date: 20250409
  Transmission Date: 20250716
  Serious: Yes (Hospitalization)
  Sender: FDA-CTU
  Company Number: None

PATIENT
  Sex: Female

DRUGS (3)
  1. ENVARSUS XR [Suspect]
     Active Substance: TACROLIMUS
     Indication: Heart transplant
     Dosage: OTHER QUANTITY : TAKE 1 TABLET (0.75 MG TOTAL);?FREQUENCY : DAILY;?
     Route: 048
     Dates: start: 20191119
  2. COREG [Concomitant]
     Active Substance: CARVEDILOL
  3. JANUVIA [Concomitant]
     Active Substance: SITAGLIPTIN PHOSPHATE

REACTIONS (1)
  - Atrial fibrillation [None]
